FAERS Safety Report 7145172-3 (Version None)
Quarter: 2010Q4

REPORT INFORMATION
  Report Type: 
  Country: None (occurrence: None)
  Receive Date: 20101208
  Receipt Date: 20101206
  Transmission Date: 20110411
  Serious: No
  Sender: FDA-Public Use
  Company Number: DE-SANOFI-AVENTIS-2010SA073487

PATIENT
  Age: 38 Year
  Sex: Female

DRUGS (1)
  1. ARAVA [Suspect]
     Route: 048

REACTIONS (1)
  - DRUG EXPOSURE DURING PREGNANCY [None]
